FAERS Safety Report 12921857 (Version 2)
Quarter: 2016Q4

REPORT INFORMATION
  Report Type: Spontaneous
  Country: US (occurrence: US)
  Receive Date: 20161108
  Receipt Date: 20161213
  Transmission Date: 20170207
  Serious: Yes (Hospitalization, Other)
  Sender: FDA-Public Use
  Company Number: US-INTERPRAG-PM-OCA2016-00201

PATIENT

DRUGS (1)
  1. OCALIVA [Suspect]
     Active Substance: OBETICHOLIC ACID
     Indication: BILIARY CIRRHOSIS PRIMARY
     Dosage: 5 MG, QD
     Route: 048
     Dates: start: 20160827

REACTIONS (4)
  - Memory impairment [Unknown]
  - Loss of consciousness [Unknown]
  - Concussion [Unknown]
  - Fall [Unknown]

NARRATIVE: CASE EVENT DATE: 201610
